FAERS Safety Report 15483804 (Version 1)
Quarter: 2018Q4

REPORT INFORMATION
  Report Type: Spontaneous
  Country: BR (occurrence: BR)
  Receive Date: 20181010
  Receipt Date: 20181010
  Transmission Date: 20190205
  Serious: Yes (Other)
  Sender: FDA-Public Use
  Company Number: BR-TAKEDA-2018TUS029363

PATIENT
  Sex: Female

DRUGS (4)
  1. DEXILANT [Suspect]
     Active Substance: DEXLANSOPRAZOLE
     Indication: GASTROOESOPHAGEAL REFLUX DISEASE
  2. DEXILANT [Suspect]
     Active Substance: DEXLANSOPRAZOLE
     Indication: DYSPEPSIA
  3. PANTOPRAZOLE [Concomitant]
     Active Substance: PANTOPRAZOLE
     Indication: GASTRIC DISORDER
     Dosage: UNK
     Route: 048
  4. DEXILANT [Suspect]
     Active Substance: DEXLANSOPRAZOLE
     Indication: GASTRIC DISORDER
     Dosage: 60 MG, QD
     Route: 048
     Dates: start: 20180921, end: 20181004

REACTIONS (31)
  - Breast swelling [Recovering/Resolving]
  - Somnolence [Recovering/Resolving]
  - Nasal discomfort [Recovering/Resolving]
  - Abdominal distension [Recovering/Resolving]
  - Arthralgia [Recovering/Resolving]
  - Breath odour [Recovering/Resolving]
  - Restlessness [Recovering/Resolving]
  - Eating disorder [Recovering/Resolving]
  - Weight decreased [Recovering/Resolving]
  - Nasal congestion [Recovering/Resolving]
  - Swelling [Recovering/Resolving]
  - Dizziness [Recovering/Resolving]
  - Mouth ulceration [Recovering/Resolving]
  - Oropharyngeal pain [Recovering/Resolving]
  - Decreased appetite [Recovering/Resolving]
  - Syncope [Recovered/Resolved]
  - Swelling face [Recovering/Resolving]
  - Haemorrhoids [Recovering/Resolving]
  - Nausea [Recovering/Resolving]
  - Pruritus genital [Recovering/Resolving]
  - Rhinorrhoea [Recovering/Resolving]
  - Dyspnoea [Recovering/Resolving]
  - Pruritus [Recovering/Resolving]
  - Influenza [Recovering/Resolving]
  - Dry mouth [Recovering/Resolving]
  - Dysphonia [Recovering/Resolving]
  - Constipation [Recovered/Resolved]
  - Oral disorder [Recovering/Resolving]
  - Asthenia [Recovering/Resolving]
  - Headache [Recovering/Resolving]
  - Bone pain [Recovering/Resolving]
